FAERS Safety Report 6385599-0 (Version None)
Quarter: 2009Q4

REPORT INFORMATION
  Report Type: 
  Country: None (occurrence: None)
  Receive Date: 20091002
  Receipt Date: 20090921
  Transmission Date: 20100525
  Serious: Yes (Hospitalization)
  Sender: FDA-Public Use
  Company Number: KR-PFIZER INC-2009264153

PATIENT
  Age: 77 Year

DRUGS (14)
  1. BLINDED *NO SUBJECT DRUG [Suspect]
     Indication: CARDIAC FAILURE CONGESTIVE
     Dosage: BLINDED THERAPY
     Route: 048
     Dates: start: 20081027, end: 20090902
  2. BLINDED *PLACEBO [Suspect]
     Indication: CARDIAC FAILURE CONGESTIVE
     Dosage: BLINDED THERAPY
     Route: 048
     Dates: start: 20081027, end: 20090902
  3. BLINDED EPLERENONE [Suspect]
     Indication: CARDIAC FAILURE CONGESTIVE
     Dosage: BLINDED THERAPY
     Route: 048
     Dates: start: 20081027, end: 20090902
  4. ASPIRIN [Concomitant]
     Dosage: 100 MG, UNK
     Route: 048
     Dates: start: 20081029
  5. CRESTOR [Concomitant]
     Dosage: 10 MG, UNK
     Route: 048
     Dates: start: 20081029
  6. DILATREND [Concomitant]
     Dosage: 12.5 MG, UNK
     Route: 048
     Dates: start: 20050301
  7. GASMOTIN [Concomitant]
     Dosage: 5 MG, UNK
     Route: 048
     Dates: start: 20081106
  8. LASIX [Concomitant]
     Dosage: 60 MG, UNK
     Route: 048
     Dates: start: 20081106
  9. SIGMART [Concomitant]
     Dosage: 2.5 MG, UNK
     Route: 048
     Dates: start: 20050301
  10. TRITACE [Concomitant]
     Dosage: 2.5 MG, UNK
     Route: 048
     Dates: start: 20081029
  11. ZYLORIC ^FAES^ [Concomitant]
     Dosage: 100 MG, UNK
     Route: 048
     Dates: start: 20050301
  12. TEPRENONE [Concomitant]
     Dosage: 50 MG, UNK
     Route: 048
     Dates: start: 20090902
  13. AMARYL [Concomitant]
     Dosage: 2 MG, UNK
     Route: 048
     Dates: start: 20090910
  14. SIOFOR [Concomitant]
     Dosage: 500 MG, UNK
     Route: 048
     Dates: start: 20090910

REACTIONS (1)
  - CEREBRAL INFARCTION [None]
